FAERS Safety Report 12919459 (Version 1)
Quarter: 2016Q4

REPORT INFORMATION
  Report Type: Spontaneous
  Country: US (occurrence: US)
  Receive Date: 20161108
  Receipt Date: 20161108
  Transmission Date: 20170207
  Serious: No
  Sender: FDA-Public Use
  Company Number: US-BAYER-2016-210052

PATIENT
  Sex: Female

DRUGS (2)
  1. MIRALAX [Suspect]
     Active Substance: POLYETHYLENE GLYCOL 3350
     Dosage: TAKE 30 DOSES IN TWO 32OZ BOTTLES OF GATORADE AND TAKE AT ONE TIME
     Route: 048
     Dates: start: 2013
  2. MIRALAX [Suspect]
     Active Substance: POLYETHYLENE GLYCOL 3350
     Dosage: TAKE 30 DOSES IN TWO 32OZ BOTTLES OF GATORADE AND TAKE AT ONE TIME
     Route: 048
     Dates: start: 2016

REACTIONS (2)
  - Off label use [None]
  - Circumstance or information capable of leading to medication error [None]

NARRATIVE: CASE EVENT DATE: 2013
